FAERS Safety Report 8036594-7 (Version None)
Quarter: 2012Q1

REPORT INFORMATION
  Report Type: 
  Country: None (occurrence: None)
  Receive Date: 20120111
  Receipt Date: 20120105
  Transmission Date: 20120608
  Serious: Yes (Other)
  Sender: FDA-Public Use
  Company Number: US-PFIZER INC-2012004473

PATIENT
  Sex: Female
  Weight: 72.562 kg

DRUGS (13)
  1. ADDERALL 5 [Suspect]
     Indication: ATTENTION DEFICIT/HYPERACTIVITY DISORDER
     Dosage: 20 MG, DAILY
  2. RISPERDAL [Suspect]
     Indication: DEPRESSION
  3. GEODON [Interacting]
     Indication: DEPRESSION
  4. SIMVASTATIN [Concomitant]
     Indication: BLOOD CHOLESTEROL INCREASED
     Dosage: UNK
  5. GEODON [Interacting]
     Indication: MENTAL DISORDER
     Dosage: 40 MG, DAILY
     Dates: start: 20040101
  6. XANAX [Concomitant]
     Indication: ANXIETY DISORDER
     Dosage: UNK
  7. PRILOSEC [Concomitant]
     Indication: ABDOMINAL DISCOMFORT
     Dosage: AS NEEDED
  8. MULTI-VITAMINS [Concomitant]
     Dosage: UNK
  9. RISPERDAL [Suspect]
     Indication: MENTAL DISORDER
     Dosage: UNK
  10. ADDERALL 5 [Suspect]
     Dosage: 10 MG, DAILY
  11. NAPROXEN [Concomitant]
     Indication: BACK PAIN
     Dosage: 500 MG, AS NEEDED
  12. EFFEXOR [Interacting]
     Dosage: UNK
  13. PREMARIN [Concomitant]
     Indication: HYSTERECTOMY
     Dosage: UNK

REACTIONS (8)
  - SCHIZOAFFECTIVE DISORDER [None]
  - DRUG INEFFECTIVE [None]
  - POTENTIATING DRUG INTERACTION [None]
  - INCORRECT DOSE ADMINISTERED [None]
  - FATIGUE [None]
  - WEIGHT INCREASED [None]
  - MALAISE [None]
  - FEELING ABNORMAL [None]
